FAERS Safety Report 25134067 (Version 1)
Quarter: 2025Q1

REPORT INFORMATION
  Report Type: Spontaneous
  Country: ID (occurrence: ID)
  Receive Date: 20250328
  Receipt Date: 20250328
  Transmission Date: 20250409
  Serious: Yes (Other)
  Sender: BAXTER
  Company Number: ID-BAXTER-2025BAX013182

PATIENT

DRUGS (1)
  1. DOXORUBICIN HYDROCHLORIDE [Suspect]
     Active Substance: DOXORUBICIN HYDROCHLORIDE
     Route: 065

REACTIONS (2)
  - Haemorrhage [Unknown]
  - Disease complication [Unknown]
